FAERS Safety Report 6438848-4 (Version None)
Quarter: 2009Q4

REPORT INFORMATION
  Report Type: 
  Country: None (occurrence: None)
  Receive Date: 20091113
  Receipt Date: 20091104
  Transmission Date: 20100525
  Serious: Yes (Death, Other)
  Sender: FDA-Public Use
  Company Number: JP-JNJFOC-20091100332

PATIENT
  Sex: Male
  Weight: 51 kg

DRUGS (4)
  1. REMICADE [Suspect]
     Dosage: 1 INFUSION ON AN UNSPECIFIED DATE
     Route: 042
     Dates: end: 20060718
  2. REMICADE [Suspect]
     Indication: RHEUMATOID ARTHRITIS
     Route: 042
     Dates: end: 20060718
  3. ENBREL [Suspect]
     Indication: RHEUMATOID ARTHRITIS
     Route: 058
     Dates: start: 20061225, end: 20090105
  4. RHEUMATREX [Suspect]
     Indication: RHEUMATOID ARTHRITIS
     Route: 048
     Dates: end: 20000208

REACTIONS (1)
  - PANCREATIC CARCINOMA [None]
